FAERS Safety Report 6533992-5 (Version None)
Quarter: 2010Q1

REPORT INFORMATION
  Report Type: 
  Country: None (occurrence: None)
  Receive Date: 20100112
  Receipt Date: 20100107
  Transmission Date: 20100710
  Serious: Yes (Hospitalization)
  Sender: FDA-Public Use
  Company Number: US-ELI_LILLY_AND_COMPANY-US200912001584

PATIENT
  Sex: Male

DRUGS (7)
  1. HUMALOG MIX 75/25 [Suspect]
     Indication: DIABETES MELLITUS
     Dosage: 30 U, EACH MORNING
     Dates: start: 20091123
  2. HUMALOG MIX 75/25 [Suspect]
     Dosage: 28 U, EACH EVENING
     Dates: start: 20091123
  3. HUMALOG MIX 75/25 [Suspect]
     Dosage: 30 U, EACH MORNING
     Dates: start: 20040101, end: 20091123
  4. HUMALOG MIX 75/25 [Suspect]
     Dosage: 28 U, EACH EVENING
     Dates: start: 20040101, end: 20091123
  5. HUMALOG [Suspect]
  6. LANTUS [Concomitant]
  7. DELSYM [Concomitant]

REACTIONS (5)
  - BLOOD GLUCOSE DECREASED [None]
  - BLOOD GLUCOSE INCREASED [None]
  - HYPERSOMNIA [None]
  - IRRITABILITY [None]
  - MALAISE [None]
